FAERS Safety Report 16664027 (Version 3)
Quarter: 2019Q3

REPORT INFORMATION
  Report Type: Report from Study
  Country: US (occurrence: US)
  Receive Date: 20190802
  Receipt Date: 20190831
  Transmission Date: 20191004
  Serious: Yes (Life-Threatening, Hospitalization)
  Sender: FDA-Public Use
  Company Number: US-TESAROUBC-2019-TSO02751-US

PATIENT
  Age: 76 Year
  Sex: Female
  Weight: 90.8 kg

DRUGS (22)
  1. GASTROGRAFIN [Concomitant]
     Active Substance: DIATRIZOATE MEGLUMINE\DIATRIZOATE SODIUM
     Indication: SMALL INTESTINAL OBSTRUCTION
     Dosage: 240 ML, SINGLE
     Route: 048
     Dates: start: 20190627, end: 20190627
  2. PROTONIX                           /00661201/ [Concomitant]
     Active Substance: OMEPRAZOLE
     Indication: GASTROOESOPHAGEAL REFLUX DISEASE
     Dosage: 40 MG, QD
     Route: 042
     Dates: start: 20190627, end: 20190630
  3. CARBOPLATIN. [Suspect]
     Active Substance: CARBOPLATIN
     Indication: OVARIAN CANCER
     Dosage: 5 AUC, SINGLE
     Route: 042
     Dates: start: 20190208, end: 20190208
  4. PACLITAXEL. [Suspect]
     Active Substance: PACLITAXEL
     Indication: OVARIAN CANCER
     Dosage: 330 MG, SINGLE
     Route: 042
     Dates: start: 20190208, end: 20190208
  5. BEVACIZUMAB. [Suspect]
     Active Substance: BEVACIZUMAB
     Indication: OVARIAN CANCER
     Dosage: 1300 MG/KG, SINGLE
     Route: 042
     Dates: start: 20190524, end: 20190524
  6. ONDANSETRON [Concomitant]
     Active Substance: ONDANSETRON
     Indication: NAUSEA
     Dosage: 4 MG, PRN
     Route: 042
     Dates: start: 20190626, end: 20190630
  7. CALCIUM CARBONATE. [Concomitant]
     Active Substance: CALCIUM CARBONATE
     Indication: DYSPEPSIA
     Dosage: 500 MG, PRN
     Route: 048
     Dates: start: 20190628
  8. MAGNESIUM SULFATE. [Concomitant]
     Active Substance: MAGNESIUM SULFATE
     Indication: HYPOMAGNESAEMIA
     Dosage: 2 G, SINGLE
     Route: 042
     Dates: start: 20190627, end: 20190627
  9. DOSTARLIMAB [Suspect]
     Active Substance: DOSTARLIMAB
     Dosage: 500 MG, UNK
     Route: 042
     Dates: start: 20190524, end: 20190524
  10. POTASSIUM [Concomitant]
     Active Substance: POTASSIUM
     Indication: INTESTINAL OBSTRUCTION
     Dosage: 75 ML, UNK
     Route: 042
     Dates: start: 20190626, end: 20190630
  11. LORAZEPAM. [Concomitant]
     Active Substance: LORAZEPAM
     Indication: GASTROINTESTINAL TUBE INSERTION
     Dosage: 1 MG, SINGLE
     Route: 042
     Dates: start: 20190626, end: 20190626
  12. ENOXAPARIN [Concomitant]
     Active Substance: ENOXAPARIN
     Indication: THROMBOSIS PROPHYLAXIS
     Dosage: 40 MG, QD
     Route: 058
     Dates: start: 20190627, end: 20190630
  13. NIRAPARIB [Suspect]
     Active Substance: NIRAPARIB
     Indication: OVARIAN CANCER
     Dosage: 300 MG, UNK
     Route: 048
     Dates: start: 20190705, end: 20190718
  14. DOSTARLIMAB [Suspect]
     Active Substance: DOSTARLIMAB
     Indication: OVARIAN CANCER
     Dosage: 500 MG, UNK
     Route: 042
     Dates: start: 20190301, end: 20190301
  15. CARBOPLATIN. [Suspect]
     Active Substance: CARBOPLATIN
     Dosage: 360 AUC, SINGLE
     Route: 042
     Dates: start: 20190524, end: 20190524
  16. OXYCODONE [Concomitant]
     Active Substance: OXYCODONE
     Indication: ABDOMINAL PAIN
     Dosage: 2.5-10 MG, PRN
     Route: 048
     Dates: start: 20190626, end: 20190630
  17. DOCUSATE PLUS SENNA [Concomitant]
     Active Substance: DOCUSATE SODIUM\SENNOSIDES A AND B
     Indication: CONSTIPATION
     Dosage: 8.6/50 MG, BID
     Route: 048
     Dates: start: 20190626, end: 20190630
  18. PACLITAXEL. [Suspect]
     Active Substance: PACLITAXEL
     Dosage: 140 MG, SINGLE
     Route: 042
     Dates: start: 20190524, end: 20190524
  19. PHENOL EZ [Concomitant]
     Indication: GASTROINTESTINAL TUBE INSERTION
     Dosage: 2 UNK, PRN
     Route: 048
     Dates: start: 20190627, end: 20190630
  20. KETOROLAC [Concomitant]
     Active Substance: KETOROLAC TROMETHAMINE
     Indication: ABDOMINAL PAIN
     Dosage: 15 MG, PRN
     Route: 042
     Dates: start: 20190627, end: 20190630
  21. FENTANYL. [Concomitant]
     Active Substance: FENTANYL
     Indication: GASTROINTESTINAL TUBE INSERTION
     Dosage: 50 ONCE, SINGLE
     Route: 042
     Dates: start: 20190626, end: 20190626
  22. PROCHLORPERAZINE. [Concomitant]
     Active Substance: PROCHLORPERAZINE
     Indication: NAUSEA
     Dosage: 5 MG, PRN
     Route: 042
     Dates: start: 20190626, end: 20190630

REACTIONS (1)
  - Pancytopenia [Not Recovered/Not Resolved]

NARRATIVE: CASE EVENT DATE: 20190726
